FAERS Safety Report 8646982 (Version 2)
Quarter: 2012Q4

REPORT INFORMATION
  Report Type: 
  Country: US (occurrence: US)
  Receive Date: 20120703
  Receipt Date: 20121017
  Transmission Date: 20130627
  Serious: Yes (Hospitalization)
  Sender: FDA-Public Use
  Company Number: US-BAYER-2012-064434

PATIENT
  Age: 22 Year
  Sex: Female
  Weight: 54.42 kg

DRUGS (11)
  1. YASMIN [Suspect]
     Dosage: UNK
     Dates: start: 200311, end: 201006
  2. OCELLA [Suspect]
     Dosage: UNK
     Dates: start: 200311, end: 201006
  3. IBUPROFEN [Concomitant]
     Indication: DYSMENORRHOEA
  4. TYLENOL [Concomitant]
  5. ADVIL [Concomitant]
  6. AMITRIPTYLINE [Concomitant]
     Indication: HEADACHE
  7. VERAPAMIL [Concomitant]
     Indication: HEADACHE
  8. COMPAZINE [Concomitant]
  9. FIORICET [Concomitant]
  10. PERCOCET [Concomitant]
  11. ROCEPHIN [Concomitant]
     Indication: PROTEINURIA

REACTIONS (7)
  - Gallbladder disorder [None]
  - Injury [None]
  - Pain [None]
  - Cholecystitis [None]
  - Renal failure acute [Recovered/Resolved]
  - Anxiety [None]
  - Anhedonia [None]
